FAERS Safety Report 9037179 (Version 1)
Quarter: 2013Q1

REPORT INFORMATION
  Report Type: Spontaneous
  Country: US (occurrence: None)
  Receive Date: 20130111
  Receipt Date: 20130111
  Transmission Date: 20140127
  Serious: Yes (Other)
  Sender: FDA-Public Use
  Company Number: 2013034390

PATIENT
  Age: 13 Year
  Sex: Male

DRUGS (1)
  1. HIZENTRA  (IMMUNOGLOBULIN HUMAN NORMAL) [Suspect]
     Dosage: 1X/WEEK, STARTED ABOUT 6 MONTHS AGO.  )
     Route: 058

REACTIONS (4)
  - Headache [None]
  - Eye pain [None]
  - Arthralgia [None]
  - Meningitis aseptic [None]
